FAERS Safety Report 4688475-4 (Version None)
Quarter: 2005Q2

REPORT INFORMATION
  Report Type: 
  Country: None (occurrence: None)
  Receive Date: 20050609
  Receipt Date: 20050602
  Transmission Date: 20051028
  Serious: Yes (Death)
  Sender: FDA-Public Use
  Company Number: 200510512BVD

PATIENT
  Age: 76 Year
  Sex: Male

DRUGS (11)
  1. AVALOX (MOXIFLOXACIN HYDROCHLORIDE) [Suspect]
     Indication: PNEUMONIA ASPIRATION
     Dosage: 400 MG, INTRAVENOUS
     Route: 042
     Dates: start: 20050323, end: 20050329
  2. TORSEMIDE [Concomitant]
  3. ISOPTIN [Concomitant]
  4. EUNERPAN [Concomitant]
  5. KALIUM DURILES [Concomitant]
  6. ROCEPHIN [Concomitant]
  7. CLONT [Concomitant]
  8. PANTOPRAZOLE SODIUM [Concomitant]
  9. PERIPLASMAL [Concomitant]
  10. RINGER [Concomitant]
  11. BUSCOPAN [Concomitant]

REACTIONS (2)
  - BRONCHITIS [None]
  - BRONCHOPNEUMONIA [None]
